FAERS Safety Report 4558853-2 (Version None)
Quarter: 2005Q1

REPORT INFORMATION
  Report Type: 
  Country: None (occurrence: None)
  Receive Date: 20050121
  Receipt Date: 20050121
  Transmission Date: 20050727
  Serious: Yes (Hospitalization, Disabling)
  Sender: FDA-Public Use
  Company Number: None

PATIENT
  Age: 41 Year
  Sex: Female
  Weight: 102.0593 kg

DRUGS (2)
  1. CYMBALTA [Suspect]
     Indication: ANXIETY
     Dosage: 30MG   DAY   ORAL
     Route: 048
     Dates: start: 20041229, end: 20050114
  2. CYMBALTA [Suspect]
     Indication: DEPRESSION
     Dosage: 30MG   DAY   ORAL
     Route: 048
     Dates: start: 20041229, end: 20050114

REACTIONS (2)
  - PHARMACEUTICAL PRODUCT COMPLAINT [None]
  - RETINAL DETACHMENT [None]
